FAERS Safety Report 21892116 (Version 3)
Quarter: 2023Q1

REPORT INFORMATION
  Report Type: Spontaneous
  Country: JP (occurrence: JP)
  Receive Date: 20230120
  Receipt Date: 20230202
  Transmission Date: 20230418
  Serious: Yes (Other)
  Sender: FDA-Public Use
  Company Number: JP-JNJFOC-20230133841

PATIENT
  Age: 87 Year
  Sex: Male

DRUGS (1)
  1. IMBRUVICA [Suspect]
     Active Substance: IBRUTINIB
     Indication: Chronic lymphocytic leukaemia
     Route: 048

REACTIONS (9)
  - Herpes zoster oticus [Unknown]
  - General physical health deterioration [Unknown]
  - Vomiting [Unknown]
  - Diarrhoea [Unknown]
  - Abulia [Unknown]
  - Pyrexia [Unknown]
  - Decreased appetite [Unknown]
  - Renal impairment [Unknown]
  - Oedema [Unknown]
